FAERS Safety Report 8246042-X (Version None)
Quarter: 2012Q1

REPORT INFORMATION
  Report Type: 
  Country: None (occurrence: None)
  Receive Date: 20120330
  Receipt Date: 20120321
  Transmission Date: 20120608
  Serious: Yes (Hospitalization)
  Sender: FDA-Public Use
  Company Number: GB-JNJFOC-20120203254

PATIENT
  Sex: Female

DRUGS (3)
  1. SIMPONI [Suspect]
     Indication: PRODUCT USED FOR UNKNOWN INDICATION
     Route: 058
     Dates: start: 20120123
  2. SIMPONI [Suspect]
     Route: 058
     Dates: start: 20120308
  3. SIMPONI [Suspect]
     Route: 058

REACTIONS (5)
  - PNEUMONIA [None]
  - ATRIAL FIBRILLATION [None]
  - VENTRICULAR HYPERTROPHY [None]
  - INFECTION [None]
  - HYPERTENSION [None]
